FAERS Safety Report 6695771-8 (Version None)
Quarter: 2010Q2

REPORT INFORMATION
  Report Type: 
  Country: None (occurrence: None)
  Receive Date: 20100423
  Receipt Date: 20100423
  Transmission Date: 20101027
  Serious: No
  Sender: FDA-Public Use
  Company Number: None

PATIENT
  Age: 27 Year
  Sex: Male
  Weight: 80 kg

DRUGS (4)
  1. SEROXAT GLAXOSMITHKLINE [Suspect]
     Indication: OBSESSIVE-COMPULSIVE DISORDER
     Dosage: 20MG 1/DAY PO
     Route: 048
     Dates: start: 20061226, end: 20070530
  2. REMERON [Concomitant]
  3. EFFEXOR XR [Concomitant]
  4. WELLBUTRIN [Concomitant]

REACTIONS (5)
  - ANAESTHESIA [None]
  - DEPRESSION [None]
  - ERECTILE DYSFUNCTION [None]
  - LOSS OF LIBIDO [None]
  - SEXUAL DYSFUNCTION [None]
